FAERS Safety Report 24675290 (Version 1)
Quarter: 2024Q4

REPORT INFORMATION
  Report Type: Report from Study
  Country: ZA (occurrence: ZA)
  Receive Date: 20241128
  Receipt Date: 20241128
  Transmission Date: 20250114
  Serious: Yes (Other)
  Sender: ROCHE
  Company Number: ZA-ROCHE-10000137448

PATIENT
  Sex: Female

DRUGS (1)
  1. OCREVUS [Suspect]
     Active Substance: OCRELIZUMAB
     Indication: Relapsing-remitting multiple sclerosis
     Dosage: THERE AFTER 600MG EVERY 6 MONTH
     Route: 042
     Dates: start: 20220615

REACTIONS (6)
  - Spinal osteoarthritis [Unknown]
  - Cerebral atrophy [Unknown]
  - Magnetic resonance imaging spinal abnormal [Unknown]
  - Facet joint syndrome [Unknown]
  - Intervertebral disc degeneration [Unknown]
  - Intervertebral disc protrusion [Unknown]
